FAERS Safety Report 8132730-2 (Version None)
Quarter: 2012Q1

REPORT INFORMATION
  Report Type: 
  Country: None (occurrence: None)
  Receive Date: 20120103
  Receipt Date: 20111115
  Transmission Date: 20120608
  Serious: No
  Sender: FDA-Public Use
  Company Number: AE-2011-003496

PATIENT
  Age: 60 Year
  Sex: Male
  Weight: 102.0593 kg

DRUGS (6)
  1. AMLODIPINE [Concomitant]
  2. ATENOLOL [Concomitant]
  3. RIBAVIRIN [Concomitant]
  4. INCIVEK [Suspect]
     Dosage: 2250 MG (750 MG,1 IN 8 HR),ORAL
     Route: 048
     Dates: start: 20110910
  5. PEGINTERFERON (PEGINTERFERON ALFA-2A) [Concomitant]
  6. BENADRYL [Concomitant]

REACTIONS (1)
  - RASH PRURITIC [None]
